FAERS Safety Report 16335020 (Version 1)
Quarter: 2019Q2

REPORT INFORMATION
  Report Type: Report from Study
  Country: None (occurrence: US)
  Receive Date: 20190520
  Receipt Date: 20190520
  Transmission Date: 20190711
  Serious: Yes (Other)
  Sender: FDA-Public Use
  Company Number: US-ABBVIE-19K-163-2782384-00

PATIENT
  Age: 21 Year
  Sex: Female

DRUGS (1)
  1. HUMIRA [Suspect]
     Active Substance: ADALIMUMAB
     Indication: PSORIASIS
     Route: 058

REACTIONS (7)
  - Histoplasmosis disseminated [Recovering/Resolving]
  - Immunodeficiency [Unknown]
  - White blood cell disorder [Recovering/Resolving]
  - Platelet disorder [Unknown]
  - Fungal infection [Unknown]
  - Red blood cell count abnormal [Unknown]
  - Haemophagocytic lymphohistiocytosis [Recovering/Resolving]

NARRATIVE: CASE EVENT DATE: 2019
